FAERS Safety Report 9149674 (Version 2)
Quarter: 2013Q1

REPORT INFORMATION
  Report Type: Report from Study
  Country: CA (occurrence: CA)
  Receive Date: 20130308
  Receipt Date: 20130313
  Transmission Date: 20140127
  Serious: Yes (Other)
  Sender: FDA-Public Use
  Company Number: CA-ABBOTT-12P-028-0989299-00

PATIENT
  Sex: Female
  Weight: 64.47 kg

DRUGS (9)
  1. HUMIRA [Suspect]
     Indication: RHEUMATOID ARTHRITIS
     Route: 058
     Dates: start: 20040726
  2. HUMIRA [Suspect]
     Route: 058
     Dates: start: 20130210
  3. SYNTHROID [Concomitant]
     Indication: THYROID DISORDER
     Route: 048
  4. FOLIC ACID [Concomitant]
     Indication: VITAMIN SUPPLEMENTATION
     Route: 048
  5. PANTOPRAZOLE [Concomitant]
     Indication: DYSPEPSIA
     Route: 048
  6. ATORVASTATIN [Concomitant]
     Indication: BLOOD CHOLESTEROL INCREASED
     Route: 048
  7. CELEBREX [Concomitant]
     Indication: RHEUMATOID ARTHRITIS
     Route: 048
  8. METHOTREXATE [Concomitant]
     Indication: RHEUMATOID ARTHRITIS
     Dosage: 0.6 ML X 15 MG
     Route: 058
  9. BRICANYL [Concomitant]
     Indication: ASTHMA
     Route: 048

REACTIONS (5)
  - Necrosis [Not Recovered/Not Resolved]
  - Necrosis [Unknown]
  - Breast disorder [Unknown]
  - Wound drainage [Unknown]
  - Breast discolouration [Unknown]
